FAERS Safety Report 10025837 (Version 1)
Quarter: 2014Q1

REPORT INFORMATION
  Report Type: Spontaneous
  Country: DK (occurrence: DK)
  Receive Date: 20140320
  Receipt Date: 20140320
  Transmission Date: 20141002
  Serious: Yes (Hospitalization, Other)
  Sender: FDA-Public Use
  Company Number: DK-WATSON-2014-04992

PATIENT
  Sex: 0

DRUGS (2)
  1. DESMOPRESSIN (UNKNOWN) [Suspect]
     Indication: NOCTURIA
     Dosage: 120 MG, UNKNOWN
     Route: 065
  2. DESMOPRESSIN (UNKNOWN) [Suspect]
     Dosage: 240 MG, UNKNOWN
     Route: 065

REACTIONS (2)
  - Hyponatraemia [Unknown]
  - Mania [Recovered/Resolved]
